FAERS Safety Report 14727282 (Version 1)
Quarter: 2018Q2

REPORT INFORMATION
  Report Type: Spontaneous
  Country: US (occurrence: US)
  Receive Date: 20180406
  Receipt Date: 20180406
  Transmission Date: 20180711
  Serious: Yes (Life-Threatening, Hospitalization, Other)
  Sender: FDA-Public Use
  Company Number: US-ELI_LILLY_AND_COMPANY-US201804001628

PATIENT
  Age: 72 Year
  Sex: Female

DRUGS (1)
  1. FORTEO [Suspect]
     Active Substance: TERIPARATIDE
     Indication: PRODUCT USED FOR UNKNOWN INDICATION
     Dosage: UNK, UNKNOWN
     Route: 065
     Dates: start: 201705

REACTIONS (14)
  - Pneumonia [Recovered/Resolved]
  - Cardiac arrest [Recovered/Resolved]
  - Fall [Recovering/Resolving]
  - Upper limb fracture [Recovered/Resolved]
  - Loss of consciousness [Recovered/Resolved]
  - Skin injury [Recovering/Resolving]
  - Staphylococcal infection [Recovering/Resolving]
  - Coma [Unknown]
  - Malaise [Unknown]
  - Hip fracture [Recovered/Resolved]
  - Tooth disorder [Not Recovered/Not Resolved]
  - Rheumatoid arthritis [Not Recovered/Not Resolved]
  - Arterial occlusive disease [Not Recovered/Not Resolved]
  - Arterial occlusive disease [Unknown]

NARRATIVE: CASE EVENT DATE: 201705
